FAERS Safety Report 4814280-1 (Version None)
Quarter: 2005Q4

REPORT INFORMATION
  Report Type: 
  Country: None (occurrence: None)
  Receive Date: 20051028
  Receipt Date: 20050728
  Transmission Date: 20060501
  Serious: No
  Sender: FDA-Public Use
  Company Number: US-GLAXOSMITHKLINE-A0568123A

PATIENT
  Age: 61 Year
  Sex: Female

DRUGS (9)
  1. ADVAIR DISKUS 100/50 [Suspect]
     Indication: ASTHMA
     Dosage: 1PUFF TWICE PER DAY
     Route: 055
     Dates: start: 20040101
  2. PRILOSEC [Concomitant]
  3. LEVOXYL [Concomitant]
  4. LIPITOR [Concomitant]
  5. TRICOR [Concomitant]
  6. XANAX [Concomitant]
  7. SERZONE [Concomitant]
  8. TYLENOL (CAPLET) [Concomitant]
  9. UNKNOWN MEDICATION [Concomitant]

REACTIONS (1)
  - DIZZINESS [None]
